FAERS Safety Report 9761558 (Version 1)
Quarter: 2013Q4

REPORT INFORMATION
  Report Type: Spontaneous
  Country: US (occurrence: US)
  Receive Date: 20131216
  Receipt Date: 20131216
  Transmission Date: 20140711
  Serious: No
  Sender: FDA-Public Use
  Company Number: US-ABBVIE-13P-163-1140700-00

PATIENT
  Age: 57 Year
  Sex: Female
  Weight: 63.56 kg

DRUGS (6)
  1. PROMETRIUM [Suspect]
     Indication: HORMONE LEVEL ABNORMAL
     Dosage: AT BEDTIME
     Dates: start: 201305
  2. VIVELLE DOT [Concomitant]
     Indication: OESTROGEN THERAPY
  3. CALAN SR [Concomitant]
     Indication: TACHYCARDIA
  4. K-TAB [Concomitant]
     Indication: BLOOD POTASSIUM DECREASED
  5. MULTIVITAMIN [Concomitant]
     Indication: PRODUCT USED FOR UNKNOWN INDICATION
  6. MAGNESIUM [Concomitant]
     Indication: PRODUCT USED FOR UNKNOWN INDICATION

REACTIONS (1)
  - Dry mouth [Not Recovered/Not Resolved]
